FAERS Safety Report 25644593 (Version 1)
Quarter: 2025Q3

REPORT INFORMATION
  Report Type: Spontaneous
  Country: US (occurrence: None)
  Receive Date: 20250803
  Receipt Date: 20250803
  Transmission Date: 20251021
  Serious: Yes (Hospitalization, Disabling)
  Sender: FDA-CTU
  Company Number: None

PATIENT
  Age: 72 Year
  Sex: Male
  Weight: 98.4 kg

DRUGS (2)
  1. APIXABAN [Suspect]
     Active Substance: APIXABAN
     Indication: Pulmonary embolism
     Dosage: FREQUENCY : TWICE A DAY;?
     Route: 048
     Dates: start: 20240927, end: 20250516
  2. CLOPIDOGREL [Suspect]
     Active Substance: CLOPIDOGREL BISULFATE

REACTIONS (7)
  - Fall [None]
  - Head injury [None]
  - Acute myocardial infarction [None]
  - Coronary artery occlusion [None]
  - Vascular stent thrombosis [None]
  - Subdural haematoma [None]
  - Brain herniation [None]

NARRATIVE: CASE EVENT DATE: 20250516
